FAERS Safety Report 8123696-X (Version None)
Quarter: 2012Q1

REPORT INFORMATION
  Report Type: 
  Country: None (occurrence: None)
  Receive Date: 20120208
  Receipt Date: 20120202
  Transmission Date: 20120608
  Serious: Yes (Death, Hospitalization, Other)
  Sender: FDA-Public Use
  Company Number: US-ELI_LILLY_AND_COMPANY-US201110004549

PATIENT
  Sex: Female

DRUGS (11)
  1. ALLEGRA [Concomitant]
     Dosage: 120 MG, QD
  2. MS CONTIN [Concomitant]
     Dosage: 30 MG, BID
     Route: 048
  3. FLOVENT [Concomitant]
     Dosage: 10 UG, BID
  4. BENICAR [Concomitant]
     Dosage: 1 DF, QD
  5. BYETTA [Suspect]
     Dosage: 5 UG, BID
     Route: 058
     Dates: start: 20060406, end: 20070101
  6. AMARYL [Concomitant]
     Dosage: 2 MG, QD
  7. SENOKOT [Concomitant]
     Dosage: 1 DF, EACH EVENING
     Route: 048
  8. COLACE [Concomitant]
     Dosage: 100 MG, BID
     Route: 048
  9. DULCOLAX [Concomitant]
     Indication: CONSTIPATION
     Dosage: 10 MG, QD
     Route: 054
  10. PROTONIX [Concomitant]
     Dosage: 40 MG, QD
  11. ALBUTEROL [Concomitant]
     Indication: DYSPNOEA
     Dosage: UNK, OTHER

REACTIONS (4)
  - PANCREATIC CARCINOMA [None]
  - WEIGHT DECREASED [None]
  - METASTATIC NEOPLASM [None]
  - CHOLELITHIASIS [None]
